FAERS Safety Report 9343993 (Version 1)
Quarter: 2013Q2

REPORT INFORMATION
  Report Type: Spontaneous
  Country: CA (occurrence: None)
  Receive Date: 20130610
  Receipt Date: 20130610
  Transmission Date: 20140414
  Serious: Yes (Other)
  Sender: FDA-Public Use
  Company Number: TPA2013A04636

PATIENT
  Age: 34 Year
  Sex: Female

DRUGS (1)
  1. DEXILANT [Suspect]
     Route: 048

REACTIONS (2)
  - Vulvovaginal pain [None]
  - Dizziness [None]
